FAERS Safety Report 9471567 (Version 3)
Quarter: 2013Q3

REPORT INFORMATION
  Report Type: Spontaneous
  Country: US (occurrence: US)
  Receive Date: 20130822
  Receipt Date: 20130923
  Transmission Date: 20140515
  Serious: No
  Sender: FDA-Public Use
  Company Number: US-009507513-1308USA008847

PATIENT
  Sex: Female
  Weight: 139.23 kg

DRUGS (1)
  1. NEXPLANON [Suspect]
     Indication: CONTRACEPTION
     Dosage: 1 ROD
     Route: 058
     Dates: start: 20130211

REACTIONS (2)
  - Device kink [Not Recovered/Not Resolved]
  - No adverse event [Unknown]
